FAERS Safety Report 7948876-5 (Version None)
Quarter: 2011Q4

REPORT INFORMATION
  Report Type: 
  Country: None (occurrence: None)
  Receive Date: 20111130
  Receipt Date: 20111128
  Transmission Date: 20120403
  Serious: Yes (Other)
  Sender: FDA-Public Use
  Company Number: GB-PFIZER INC-2011289324

PATIENT
  Age: 44 Year
  Sex: Female

DRUGS (2)
  1. VARENICLINE TARTRATE [Suspect]
     Indication: SMOKING CESSATION THERAPY
     Dosage: UNK
  2. HUMIRA [Concomitant]
     Indication: PSORIASIS
     Dosage: 40 MG, 2X/WEEK

REACTIONS (3)
  - CHEST PAIN [None]
  - PSORIATIC ARTHROPATHY [None]
  - DYSPNOEA [None]
